FAERS Safety Report 5488487-7 (Version None)
Quarter: 2007Q4

REPORT INFORMATION
  Report Type: 
  Country: None (occurrence: None)
  Receive Date: 20071017
  Receipt Date: 20071009
  Transmission Date: 20080405
  Serious: Yes (Hospitalization)
  Sender: FDA-Public Use
  Company Number: US-AMGEN-US217432

PATIENT
  Sex: Male

DRUGS (6)
  1. PANITUMUMAB [Suspect]
     Indication: COLORECTAL CANCER
     Route: 042
     Dates: start: 20070220
  2. IRINOTECAN HCL [Concomitant]
     Route: 042
  3. FLUOROURACIL [Concomitant]
     Route: 042
  4. LEUCOVORIN [Concomitant]
     Route: 042
  5. METHADONE HCL [Concomitant]
     Route: 048
  6. OXYCODONE HYDROCHLORIDE [Concomitant]
     Route: 048

REACTIONS (2)
  - FEBRILE NEUTROPENIA [None]
  - MUCOSAL INFLAMMATION [None]
